FAERS Safety Report 8394616-8 (Version None)
Quarter: 2012Q2

REPORT INFORMATION
  Report Type: 
  Country: None (occurrence: None)
  Receive Date: 20120530
  Receipt Date: 20120517
  Transmission Date: 20120825
  Serious: Yes (Hospitalization)
  Sender: FDA-Public Use
  Company Number: US-MYLANLABS-2012S1010516

PATIENT
  Age: 73 Year
  Sex: Male

DRUGS (1)
  1. CARBIDOPA AND LEVODOPA [Suspect]
     Dosage: 5 TIMES A DAY
     Route: 065

REACTIONS (5)
  - CONFUSIONAL STATE [None]
  - DELIRIUM [None]
  - TOXICITY TO VARIOUS AGENTS [None]
  - HALLUCINATION, VISUAL [None]
  - ATHETOSIS [None]
